FAERS Safety Report 25953657 (Version 1)
Quarter: 2025Q4

REPORT INFORMATION
  Report Type: Spontaneous
  Country: US (occurrence: None)
  Receive Date: 20251022
  Receipt Date: 20251022
  Transmission Date: 20260118
  Serious: Yes (Hospitalization)
  Sender: FDA-CTU
  Company Number: None

PATIENT
  Sex: Female

DRUGS (1)
  1. NUCALA [Suspect]
     Active Substance: MEPOLIZUMAB
     Indication: Chronic obstructive pulmonary disease
     Dosage: 100 MG : EVERY 28 DAYS  SUBCUTANEOUS?
     Route: 058
     Dates: start: 20250701

REACTIONS (2)
  - Chronic obstructive pulmonary disease [None]
  - Pneumonia [None]
